FAERS Safety Report 8315479-2 (Version None)
Quarter: 2012Q2

REPORT INFORMATION
  Report Type: 
  Country: None (occurrence: None)
  Receive Date: 20120426
  Receipt Date: 20120417
  Transmission Date: 20120825
  Serious: Yes (Hospitalization, Other)
  Sender: FDA-Public Use
  Company Number: US-VERTEX PHARMACEUTICALS INC.-AE-2012-004914

PATIENT
  Age: 55 Year
  Sex: Female

DRUGS (6)
  1. PEGASYS [Concomitant]
     Indication: HEPATITIS C
     Dates: start: 20120207
  2. ZOLOFT [Concomitant]
  3. LEVOTHYROXINE SODIUM [Concomitant]
  4. INCIVEK [Suspect]
     Indication: HEPATITIS C
     Route: 048
     Dates: start: 20120207, end: 20120409
  5. RIBAVIRIN [Concomitant]
     Indication: HEPATITIS C
     Dates: start: 20120207, end: 20120409
  6. ALBUTEROL [Concomitant]

REACTIONS (2)
  - GASTROINTESTINAL ULCER HAEMORRHAGE [None]
  - CONSTIPATION [None]
